FAERS Safety Report 4756736-6 (Version None)
Quarter: 2005Q3

REPORT INFORMATION
  Report Type: 
  Country: None (occurrence: None)
  Receive Date: 20050830
  Receipt Date: 20050819
  Transmission Date: 20060218
  Serious: Yes (Hospitalization)
  Sender: FDA-Public Use
  Company Number: US-MERCK-0508USA03938

PATIENT
  Age: 73 Year
  Sex: Female
  Weight: 77 kg

DRUGS (15)
  1. VIOXX [Suspect]
     Indication: BACK PAIN
     Route: 048
     Dates: start: 20020228, end: 20040901
  2. VIOXX [Suspect]
     Indication: ARTHRALGIA
     Route: 048
     Dates: start: 20020228, end: 20040901
  3. BETAMETHASONE [Concomitant]
     Route: 065
  4. DETROL [Concomitant]
     Route: 065
  5. CIPROFLOXACIN HCL [Concomitant]
     Route: 065
  6. PRILOSEC [Concomitant]
     Route: 065
  7. GLUCOPHAGE [Concomitant]
     Route: 065
  8. BLEPHAMIDE [Concomitant]
     Route: 065
  9. BUTALBITAL [Concomitant]
     Route: 065
  10. CELEBREX [Concomitant]
     Route: 065
  11. OLUX FOAM [Concomitant]
     Route: 065
  12. BISACODYL [Concomitant]
     Route: 065
  13. VASOTEC RPD [Concomitant]
     Route: 065
  14. SIMETHICONE [Concomitant]
     Route: 065
  15. ASPIRIN [Concomitant]
     Route: 065

REACTIONS (17)
  - ANGINA PECTORIS [None]
  - AORTIC ATHEROSCLEROSIS [None]
  - AORTIC DISORDER [None]
  - CEREBRAL ATROPHY [None]
  - CEREBRAL INFARCTION [None]
  - CEREBROVASCULAR ACCIDENT [None]
  - ESSENTIAL TREMOR [None]
  - FALL [None]
  - GAIT DISTURBANCE [None]
  - HEADACHE [None]
  - HYPERTENSION [None]
  - MITRAL VALVE INCOMPETENCE [None]
  - NAUSEA [None]
  - SUBDURAL HAEMATOMA [None]
  - TENSION HEADACHE [None]
  - VENTRICULAR DYSFUNCTION [None]
  - VENTRICULAR HYPERTROPHY [None]
